FAERS Safety Report 11477439 (Version 1)
Quarter: 2015Q3

REPORT INFORMATION
  Report Type: Spontaneous
  Country: US (occurrence: US)
  Receive Date: 20150909
  Receipt Date: 20150909
  Transmission Date: 20151125
  Serious: No
  Sender: FDA-Public Use
  Company Number: US-JAZZ-2014-US-009333

PATIENT
  Age: 31 Year
  Sex: Female
  Weight: 113.38 kg

DRUGS (2)
  1. XYREM [Suspect]
     Active Substance: SODIUM OXYBATE
     Indication: HYPERSOMNIA
     Dosage: 3.0 G, BID
     Route: 048
     Dates: start: 201407
  2. XYREM [Suspect]
     Active Substance: SODIUM OXYBATE
     Indication: NARCOLEPSY
     Dosage: 2.25 G, BID
     Route: 048
     Dates: start: 201407, end: 201407

REACTIONS (2)
  - Ocular discomfort [Recovered/Resolved]
  - Asthenopia [Recovered/Resolved]

NARRATIVE: CASE EVENT DATE: 201407
